FAERS Safety Report 5715053-8 (Version None)
Quarter: 2008Q2

REPORT INFORMATION
  Report Type: 
  Country: None (occurrence: None)
  Receive Date: 20080423
  Receipt Date: 20080414
  Transmission Date: 20081010
  Serious: Yes (Hospitalization)
  Sender: FDA-Public Use
  Company Number: BR-ABBOTT-08P-020-0447387-00

PATIENT
  Sex: Female
  Weight: 67 kg

DRUGS (4)
  1. HUMIRA [Suspect]
     Indication: RHEUMATOID ARTHRITIS
     Dosage: 1 APPLICATION
     Route: 058
     Dates: start: 20080220, end: 20080301
  2. OMEPRAZOLE [Concomitant]
     Indication: ULCER
     Route: 048
  3. CHLORTHALIDONE [Concomitant]
     Indication: HYPERTENSION
     Route: 048
  4. ATENOLOL [Concomitant]
     Indication: HYPERTENSION
     Route: 048

REACTIONS (8)
  - ANAEMIA [None]
  - BACK PAIN [None]
  - BLOOD GLUCOSE INCREASED [None]
  - HEPATIC STEATOSIS [None]
  - HEPATITIS [None]
  - PYREXIA [None]
  - URINARY TRACT INFECTION [None]
  - YELLOW SKIN [None]
